FAERS Safety Report 9323508 (Version 3)
Quarter: 2013Q3

REPORT INFORMATION
  Report Type: Spontaneous
  Country: US (occurrence: US)
  Receive Date: 20130603
  Receipt Date: 20130723
  Transmission Date: 20140515
  Serious: No
  Sender: FDA-Public Use
  Company Number: US-PFIZER INC-2013166374

PATIENT
  Sex: Female

DRUGS (1)
  1. LIPITOR [Suspect]
     Indication: HYPERLIPIDAEMIA
     Dosage: 40 MG, DAILY
     Route: 048
     Dates: start: 20130304, end: 20130305

REACTIONS (2)
  - Urticaria [Unknown]
  - Rash [Recovering/Resolving]
